FAERS Safety Report 9929964 (Version 1)
Quarter: 2014Q1

REPORT INFORMATION
  Report Type: Spontaneous
  Country: US (occurrence: US)
  Receive Date: 20140227
  Receipt Date: 20140227
  Transmission Date: 20141002
  Serious: Yes (Hospitalization, Other)
  Sender: FDA-Public Use
  Company Number: PHEH2014US003279

PATIENT
  Age: 46 Year
  Sex: 0

DRUGS (4)
  1. CLOZARIL [Suspect]
     Dosage: 300 MG, DAILY
  2. CLOZARIL [Suspect]
     Dosage: 100 MG, DAILY
  3. CLOZARIL [Suspect]
     Dosage: 25 MG, DAILY
  4. VANCOMYCIN HYDROCHLORIDE [Suspect]
     Dosage: UNK UKN, UNK
     Dates: start: 20140121

REACTIONS (3)
  - Pneumonia [Unknown]
  - Agranulocytosis [Unknown]
  - Neutrophil count decreased [Recovering/Resolving]
